FAERS Safety Report 13037231 (Version 1)
Quarter: 2016Q4

REPORT INFORMATION
  Report Type: Spontaneous
  Country: FR (occurrence: FR)
  Receive Date: 20161216
  Receipt Date: 20161216
  Transmission Date: 20170207
  Serious: Yes (Hospitalization)
  Sender: FDA-Public Use
  Company Number: FR-ELI_LILLY_AND_COMPANY-FR201612003864

PATIENT
  Age: 57 Year
  Sex: Female

DRUGS (1)
  1. FORSTEO [Suspect]
     Active Substance: TERIPARATIDE
     Indication: OSTEOPOROSIS
     Dosage: 20 UG, UNKNOWN
     Route: 065
     Dates: start: 2015, end: 201608

REACTIONS (9)
  - Myalgia [Unknown]
  - Dysgeusia [Unknown]
  - Hallucination [Unknown]
  - Delirium [Unknown]
  - Hiatus hernia [Unknown]
  - Bone pain [Unknown]
  - Arthralgia [Unknown]
  - Epilepsy [Unknown]
  - Oesophagitis [Recovered/Resolved]

NARRATIVE: CASE EVENT DATE: 201605
